FAERS Safety Report 9419837 (Version 5)
Quarter: 2013Q3

REPORT INFORMATION
  Report Type: Spontaneous
  Country: US (occurrence: US)
  Receive Date: 20130725
  Receipt Date: 20130910
  Transmission Date: 20140515
  Serious: Yes (Hospitalization, Other)
  Sender: FDA-Public Use
  Company Number: US-GENZYME-POMP-1003147

PATIENT
  Age: 17 Year
  Sex: Female
  Weight: 45 kg

DRUGS (11)
  1. LUMIZYME [Suspect]
     Indication: GLYCOGEN STORAGE DISEASE TYPE II
     Dosage: 8.8 MG/KG, QW
     Route: 042
     Dates: start: 20101231
  2. BENADRYL [Concomitant]
     Indication: PREMEDICATION
     Dosage: UNK
     Route: 065
  3. IBUPROFEN [Concomitant]
     Indication: PREMEDICATION
     Dosage: UNK
     Route: 065
  4. ZOLOFT [Concomitant]
     Indication: PRODUCT USED FOR UNKNOWN INDICATION
     Dosage: 50 MG, QD
     Route: 065
  5. ELAVIL [Concomitant]
     Indication: PRODUCT USED FOR UNKNOWN INDICATION
     Dosage: 50 MG, QD
     Route: 065
  6. EPHEDRINE [Concomitant]
     Indication: PRODUCT USED FOR UNKNOWN INDICATION
     Dosage: 25 MG, BID
     Route: 048
  7. GABAPENTIN [Concomitant]
     Indication: PRODUCT USED FOR UNKNOWN INDICATION
     Dosage: 300 MG, TID
     Route: 048
  8. CELEBREX [Concomitant]
     Indication: PRODUCT USED FOR UNKNOWN INDICATION
     Dosage: 100 MG, BID
     Route: 048
  9. LORTAB [Concomitant]
     Indication: PRODUCT USED FOR UNKNOWN INDICATION
     Dosage: UNK
     Route: 065
  10. PREDNISONE [Concomitant]
     Indication: PRODUCT USED FOR UNKNOWN INDICATION
     Dosage: 20 MG (3 TABLETS), QD
     Route: 048
  11. SERTRALINE [Concomitant]
     Indication: PRODUCT USED FOR UNKNOWN INDICATION
     Dosage: 50 MG (1 TABLET), QD (EVERY MORNING)
     Route: 048

REACTIONS (5)
  - Tetany [Recovered/Resolved]
  - Pain [Not Recovered/Not Resolved]
  - Paraesthesia [Recovered/Resolved]
  - Headache [Not Recovered/Not Resolved]
  - Muscle spasms [Recovered/Resolved]
